FAERS Safety Report 21825836 (Version 8)
Quarter: 2023Q2

REPORT INFORMATION
  Report Type: Report from Study
  Country: US (occurrence: US)
  Receive Date: 20230105
  Receipt Date: 20230606
  Transmission Date: 20230721
  Serious: No
  Sender: FDA-Public Use
  Company Number: US-002147023-NVSC2023US002203

PATIENT
  Age: 11 Year
  Sex: Female

DRUGS (2)
  1. ILARIS [Suspect]
     Active Substance: CANAKINUMAB
     Indication: Still^s disease
     Dosage: 210 MG, Q4W
     Route: 058
     Dates: start: 20221104
  2. ILARIS [Suspect]
     Active Substance: CANAKINUMAB
     Dosage: UNK, STRENGTH 150 MG/ML PHARMACEUTICAL FORM: INJECTION
     Route: 058
     Dates: start: 20221220

REACTIONS (8)
  - Rash [Recovering/Resolving]
  - Joint swelling [Recovering/Resolving]
  - Pain in extremity [Unknown]
  - Influenza [Unknown]
  - Nausea [Unknown]
  - Rhinorrhoea [Unknown]
  - Fatigue [Unknown]
  - Diarrhoea [Unknown]

NARRATIVE: CASE EVENT DATE: 20221206
